FAERS Safety Report 8184157-5 (Version None)
Quarter: 2012Q1

REPORT INFORMATION
  Report Type: 
  Country: None (occurrence: None)
  Receive Date: 20120305
  Receipt Date: 20120105
  Transmission Date: 20120608
  Serious: No
  Sender: FDA-Public Use
  Company Number: US-ABBOTT-12P-163-0890020-00

PATIENT
  Age: 42 Year
  Sex: Female

DRUGS (5)
  1. SUDAFED 12 HOUR [Concomitant]
     Indication: SINUSITIS
     Dates: start: 20120101
  2. BIAXIN XL [Suspect]
     Indication: SINUSITIS
     Dates: start: 20120104
  3. NASAL SALINE [Concomitant]
     Indication: SINUSITIS
     Dates: start: 20120101
  4. ACETAMINOPHEN [Concomitant]
     Indication: SINUSITIS
     Dates: start: 20120101
  5. FLONASE [Concomitant]
     Indication: SINUSITIS
     Dates: start: 20120101

REACTIONS (1)
  - BLOOD BLISTER [None]
